FAERS Safety Report 7238411-1 (Version None)
Quarter: 2011Q1

REPORT INFORMATION
  Report Type: 
  Country: None (occurrence: None)
  Receive Date: 20110121
  Receipt Date: 20110118
  Transmission Date: 20110831
  Serious: Yes (Hospitalization)
  Sender: FDA-Public Use
  Company Number: ES-MERCK-1101ESP00022

PATIENT
  Age: 76 Year
  Sex: Male

DRUGS (6)
  1. DILTIAZEM HYDROCHLORIDE [Concomitant]
     Indication: HYPERTENSION
     Route: 065
  2. SINEMET CR [Suspect]
     Indication: PARKINSON'S DISEASE
     Route: 065
     Dates: start: 20080101
  3. SINEMET [Concomitant]
     Indication: PARKINSON'S DISEASE
     Route: 065
     Dates: start: 20080101
  4. LEVETIRACETAM [Concomitant]
     Indication: EPILEPSY
     Route: 065
     Dates: start: 20080101
  5. CLOPIDOGREL BISULFATE [Concomitant]
     Indication: CEREBROVASCULAR ACCIDENT
     Route: 065
     Dates: start: 20080101
  6. ROTIGOTINE [Concomitant]
     Indication: PARKINSON'S DISEASE
     Route: 065
     Dates: start: 20080101

REACTIONS (3)
  - MASTICATION DISORDER [None]
  - HYPOAESTHESIA FACIAL [None]
  - SPEECH DISORDER [None]
